FAERS Safety Report 20461116 (Version 2)
Quarter: 2022Q1

REPORT INFORMATION
  Report Type: Report from Study
  Country: US (occurrence: US)
  Receive Date: 20220211
  Receipt Date: 20220214
  Transmission Date: 20220423
  Serious: No
  Sender: FDA-Public Use
  Company Number: US-HRARD-2021000042

PATIENT
  Age: 70 Year
  Sex: Male

DRUGS (20)
  1. LYSODREN [Suspect]
     Active Substance: MITOTANE
     Dosage: 500 MG BID
     Route: 048
     Dates: start: 20201229, end: 20210123
  2. AMIODARONE [Concomitant]
     Active Substance: AMIODARONE
  3. COLACE [Concomitant]
     Active Substance: DOCUSATE SODIUM
  4. COLESTIPOL [Concomitant]
     Active Substance: COLESTIPOL
  5. ELIQUIS [Concomitant]
     Active Substance: APIXABAN
  6. FLOMAX [Concomitant]
     Active Substance: TAMSULOSIN HYDROCHLORIDE
  7. GLIPIZIDE [Concomitant]
     Active Substance: GLIPIZIDE
  8. JARDIANCE [Concomitant]
     Active Substance: EMPAGLIFLOZIN
  9. KLOR-CON [Concomitant]
     Active Substance: POTASSIUM CHLORIDE
  10. LASIX [Concomitant]
     Active Substance: FUROSEMIDE
  11. LIPITOR [Concomitant]
     Active Substance: ATORVASTATIN CALCIUM
  12. METFORMIN [Concomitant]
     Active Substance: METFORMIN HYDROCHLORIDE
  13. METOPROLOL [Concomitant]
     Active Substance: METOPROLOL
  14. NITROGLYCERIN [Concomitant]
     Active Substance: NITROGLYCERIN
  15. MINERALS\VITAMINS [Concomitant]
     Active Substance: MINERALS\VITAMINS
  16. SILVADENE [Concomitant]
     Active Substance: SILVER SULFADIAZINE
  17. VITAMIN D3 [Concomitant]
     Active Substance: CHOLECALCIFEROL
  18. TYLENOL [Concomitant]
     Active Substance: ACETAMINOPHEN
  19. XANAX [Concomitant]
     Active Substance: ALPRAZOLAM
  20. ZOLOFT [Concomitant]
     Active Substance: SERTRALINE HYDROCHLORIDE

REACTIONS (5)
  - Feeling abnormal [Recovered/Resolved]
  - Alopecia [Recovered/Resolved]
  - Sleep disorder [Recovered/Resolved]
  - Decreased appetite [Recovered/Resolved]
  - Nausea [Recovered/Resolved]

NARRATIVE: CASE EVENT DATE: 20210101
